FAERS Safety Report 15935410 (Version 1)
Quarter: 2019Q1

REPORT INFORMATION
  Report Type: Spontaneous
  Country: CN (occurrence: CN)
  Receive Date: 20190207
  Receipt Date: 20190207
  Transmission Date: 20190417
  Serious: Yes (Life-Threatening, Hospitalization, Other)
  Sender: FDA-Public Use
  Company Number: CN-BAXTER-2019BAX002471

PATIENT
  Age: 45 Year
  Sex: Female

DRUGS (4)
  1. ENDOXAN [Suspect]
     Active Substance: CYCLOPHOSPHAMIDE
     Indication: BREAST CANCER
     Dosage: DILUTED WITH 100 ML OF SODIUM CHLORIDE
     Route: 041
     Dates: start: 20181110, end: 20181110
  2. 5% GLUCOSE  INJECTION [Suspect]
     Active Substance: DEXTROSE
     Indication: MEDICATION DILUTION
     Dosage: DILUTED WITH PIRARUBICIN 100 MG
     Route: 041
     Dates: start: 20181110, end: 20181110
  3. SODIUM CHLORIDE. [Suspect]
     Active Substance: SODIUM CHLORIDE
     Indication: MEDICATION DILUTION
     Dosage: DILUTED WITH CYCLOPHOSPHAMIDE 0.2 G
     Route: 041
     Dates: start: 20181110, end: 20181110
  4. PIRARUBICIN HYDROCHLORIDE [Suspect]
     Active Substance: PIRARUBICIN HYDROCHLORIDE
     Indication: BREAST CANCER
     Dosage: DILUTED WITH 250 ML OF 5% GLUCOSE
     Route: 041
     Dates: start: 20181110, end: 20181110

REACTIONS (4)
  - Bone marrow failure [Recovering/Resolving]
  - Platelet count decreased [Recovering/Resolving]
  - Septic shock [Recovering/Resolving]
  - White blood cell count decreased [Recovering/Resolving]

NARRATIVE: CASE EVENT DATE: 20181122
